FAERS Safety Report 12504606 (Version 1)
Quarter: 2016Q2

REPORT INFORMATION
  Report Type: Spontaneous
  Country: US (occurrence: US)
  Receive Date: 20160628
  Receipt Date: 20160628
  Transmission Date: 20160815
  Serious: No
  Sender: FDA-Public Use
  Company Number: US-009507513-1606USA012640

PATIENT
  Age: 52 Year
  Sex: Female

DRUGS (3)
  1. PITAVASTATIN CALCIUM [Suspect]
     Active Substance: PITAVASTATIN CALCIUM
  2. ATORVASTATIN [Suspect]
     Active Substance: ATORVASTATIN
  3. ZOCOR [Suspect]
     Active Substance: SIMVASTATIN

REACTIONS (3)
  - Nausea [Unknown]
  - Pain [Unknown]
  - Influenza [Unknown]
